FAERS Safety Report 10487720 (Version 2)
Quarter: 2014Q4

REPORT INFORMATION
  Report Type: Spontaneous
  Country: GB (occurrence: GB)
  Receive Date: 20141001
  Receipt Date: 20141012
  Transmission Date: 20150528
  Serious: Yes (Death, Other)
  Sender: FDA-Public Use
  Company Number: PHFR2014GB006672

PATIENT
  Sex: Female

DRUGS (1)
  1. CLOZARIL [Suspect]
     Active Substance: CLOZAPINE
     Indication: SCHIZOPHRENIA
     Route: 048
     Dates: start: 20090622

REACTIONS (6)
  - Neoplasm malignant [Fatal]
  - Metastases to central nervous system [Unknown]
  - Lung neoplasm malignant [Unknown]
  - Cerebral haemorrhage [Fatal]
  - Metastases to liver [Unknown]
  - Fall [Unknown]
